FAERS Safety Report 8514856-4 (Version None)
Quarter: 2012Q3

REPORT INFORMATION
  Report Type: 
  Country: None (occurrence: None)
  Receive Date: 20120717
  Receipt Date: 20120711
  Transmission Date: 20120928
  Serious: Yes (Disabling, Other)
  Sender: FDA-Public Use
  Company Number: FR-ROCHE-1079512

PATIENT
  Sex: Female
  Weight: 57.068 kg

DRUGS (7)
  1. XOLAIR [Suspect]
     Route: 058
     Dates: start: 20120531
  2. XYZAL [Concomitant]
     Indication: ECZEMA
     Dosage: 1 TABLET AT NIGHT
     Dates: start: 20050101
  3. INNOVAR [Concomitant]
     Indication: ASTHMA
     Dosage: 2 INHALATIONS TWICE DAILY
     Dates: start: 20081022
  4. AIROMIR [Concomitant]
     Indication: RHINITIS
     Dosage: 2 TO 14 INHALATIONS DAILY
     Dates: start: 20050101
  5. XOLAIR [Suspect]
     Dosage: SECOND OR THIRD INJECTION
     Route: 058
     Dates: start: 20120516
  6. XOLAIR [Suspect]
     Indication: ASTHMA
     Route: 058
     Dates: start: 20120401
  7. HYDROCORTISONE [Concomitant]
     Indication: ADRENAL INSUFFICIENCY

REACTIONS (13)
  - SWELLING FACE [None]
  - CONJUNCTIVITIS ALLERGIC [None]
  - RHINORRHOEA [None]
  - PYREXIA [None]
  - MUSCULOSKELETAL PAIN [None]
  - EOSINOPHILIA [None]
  - HYPERSENSITIVITY [None]
  - NECK PAIN [None]
  - HEADACHE [None]
  - HYPOAESTHESIA ORAL [None]
  - ARTHRALGIA [None]
  - ERYTHEMA [None]
  - PERIORBITAL OEDEMA [None]
